FAERS Safety Report 21544598 (Version 1)
Quarter: 2022Q4

REPORT INFORMATION
  Report Type: Spontaneous
  Country: US (occurrence: None)
  Receive Date: 20221101
  Receipt Date: 20221101
  Transmission Date: 20230113
  Serious: Yes (Other)
  Sender: FDA-Public Use
  Company Number: None

PATIENT
  Sex: Female

DRUGS (1)
  1. KETOCONAZOLE [Suspect]
     Active Substance: KETOCONAZOLE
     Indication: Seborrhoeic dermatitis
     Dosage: FREQUENCY : DAILY;?
     Route: 003
     Dates: start: 20220719, end: 20220719

REACTIONS (3)
  - Accidental exposure to product [None]
  - Eye pain [None]
  - Visual impairment [None]
